FAERS Safety Report 9613517 (Version 1)
Quarter: 2013Q4

REPORT INFORMATION
  Report Type: Spontaneous
  Country: GB (occurrence: None)
  Receive Date: 20131008
  Receipt Date: 20131008
  Transmission Date: 20140711
  Serious: Yes (Other)
  Sender: FDA-Public Use
  Company Number: AUR-APL-2013-08060

PATIENT
  Age: 22 Year
  Sex: Female
  Weight: 61 kg

DRUGS (2)
  1. ESCITALOPRAM [Suspect]
     Route: 048
     Dates: start: 20130827, end: 201308
  2. DEPO-PROVERA (MEDROXYPROGESTERONE ACETATE) [Concomitant]

REACTIONS (10)
  - Restlessness [None]
  - Abnormal dreams [None]
  - Dizziness [None]
  - Tremor [None]
  - Erythema [None]
  - Hyperhidrosis [None]
  - Agitation [None]
  - Confusional state [None]
  - Vaginal haemorrhage [None]
  - Mydriasis [None]
